FAERS Safety Report 14673180 (Version 3)
Quarter: 2018Q2

REPORT INFORMATION
  Report Type: Spontaneous
  Country: JP (occurrence: JP)
  Receive Date: 20180323
  Receipt Date: 20180418
  Transmission Date: 20180711
  Serious: Yes (Death)
  Sender: FDA-Public Use
  Company Number: JP-ROCHE-2095467

PATIENT
  Age: 81 Year
  Sex: Female
  Weight: 43 kg

DRUGS (7)
  1. PYDOXAL [Concomitant]
     Active Substance: PYRIDOXAL
     Route: 048
     Dates: start: 20171221, end: 20180104
  2. UREPEARL [Concomitant]
     Active Substance: UREA
     Dosage: DOSAGE IS UNCERTAIN.
     Route: 003
     Dates: start: 20171221, end: 20180104
  3. GRANISETRON [Concomitant]
     Active Substance: GRANISETRON
     Dosage: DOSAGE IS UNCERTAIN.
     Route: 041
     Dates: start: 20171221, end: 20171221
  4. XELODA [Suspect]
     Active Substance: CAPECITABINE
     Indication: COLON CANCER
     Route: 048
     Dates: start: 20171221, end: 20180104
  5. AVASTIN [Suspect]
     Active Substance: BEVACIZUMAB
     Indication: COLON CANCER
     Dosage: DOSAGE IS UNCERTAIN.
     Route: 041
     Dates: start: 20171221, end: 20171221
  6. ELPLAT [Suspect]
     Active Substance: OXALIPLATIN
     Indication: COLON CANCER
     Dosage: DOSE INTERVAL UNCERTAINTY
     Route: 041
     Dates: start: 20171221, end: 20171221
  7. DECADRON [Concomitant]
     Active Substance: DEXAMETHASONE
     Dosage: DOSAGE IS UNCERTAIN.
     Route: 065
     Dates: start: 20171221, end: 20171221

REACTIONS (1)
  - Interstitial lung disease [Fatal]

NARRATIVE: CASE EVENT DATE: 20180102
